FAERS Safety Report 5535673-3 (Version None)
Quarter: 2007Q4

REPORT INFORMATION
  Report Type: 
  Country: None (occurrence: None)
  Receive Date: 20071204
  Receipt Date: 20071204
  Transmission Date: 20080405
  Serious: Yes (Hospitalization)
  Sender: FDA-Public Use
  Company Number: None

PATIENT
  Sex: Male
  Weight: 82 kg

DRUGS (4)
  1. DEXAMETHASONE TAB [Suspect]
     Dosage: 44 MG
     Dates: start: 20071101
  2. MERCAPTOPURINE [Suspect]
     Dosage: 2.8 G
  3. METHOTREXATE [Suspect]
     Dosage: 160 MG
  4. VINCRISTINE SULFATE [Suspect]
     Dosage: 2 MG

REACTIONS (5)
  - BLOOD BILIRUBIN INCREASED [None]
  - BLOOD LACTATE DEHYDROGENASE INCREASED [None]
  - NEUTROPHIL COUNT DECREASED [None]
  - PNEUMOCYSTIS JIROVECI INFECTION [None]
  - TREATMENT NONCOMPLIANCE [None]
